FAERS Safety Report 7478165-7 (Version None)
Quarter: 2011Q2

REPORT INFORMATION
  Report Type: 
  Country: None (occurrence: None)
  Receive Date: 20110506
  Receipt Date: 20110421
  Transmission Date: 20111010
  Serious: Yes (Hospitalization, Other)
  Sender: FDA-Public Use
  Company Number: JPI-P-012982

PATIENT
  Age: 40 Year
  Sex: Female
  Weight: 97.977 kg

DRUGS (6)
  1. XYREM [Suspect]
     Indication: CATAPLEXY
     Dosage: 4.5 GM (2.25 GM, 2 IN 1 D), ORAL 9 GM (4.5 GM, 2 IN 1 D), ORAL
     Route: 048
     Dates: start: 20051111
  2. XYREM [Suspect]
     Indication: CATAPLEXY
     Dosage: 4.5 GM (2.25 GM, 2 IN 1 D), ORAL 9 GM (4.5 GM, 2 IN 1 D), ORAL
     Route: 048
     Dates: start: 20040801
  3. AMLODIPINE BESYLATE [Suspect]
     Indication: PRODUCT USED FOR UNKNOWN INDICATION
  4. PROGESTERONE [Concomitant]
  5. LEUPROLIDE ACETATE [Concomitant]
  6. UNSPECIFIED BLOOD PRESSURE MEDICATION [Concomitant]

REACTIONS (5)
  - UTERINE PAIN [None]
  - UTERINE DISORDER [None]
  - ANAEMIA [None]
  - LOSS OF CONSCIOUSNESS [None]
  - HAEMORRHAGE [None]
